FAERS Safety Report 5123117-5 (Version None)
Quarter: 2006Q4

REPORT INFORMATION
  Report Type: 
  Country: None (occurrence: None)
  Receive Date: 20061005
  Receipt Date: 20060929
  Transmission Date: 20070319
  Serious: Yes (Death, Other)
  Sender: FDA-Public Use
  Company Number: 2006-02522

PATIENT
  Age: 81 Year
  Sex: Male
  Weight: 56.1 kg

DRUGS (2)
  1. VELCADE [Suspect]
     Indication: LUNG ADENOCARCINOMA
     Dosage: 60 MG/M2, UNK, IV BOLUS
     Route: 040
     Dates: start: 20060818, end: 20060921
  2. TAXOTERE [Suspect]
     Indication: LUNG ADENOCARCINOMA
     Dosage: 30.00 MG/M2, UNK, INTRAVENOUS
     Route: 042
     Dates: start: 20060818, end: 20060921

REACTIONS (10)
  - BLOOD PRESSURE SYSTOLIC INCREASED [None]
  - DIARRHOEA [None]
  - HAEMOGLOBIN DECREASED [None]
  - HYPERGLYCAEMIA [None]
  - LUNG CANCER METASTATIC [None]
  - MOOD ALTERED [None]
  - NAUSEA [None]
  - PLATELET COUNT INCREASED [None]
  - SUDDEN DEATH [None]
  - VOMITING [None]
